FAERS Safety Report 15557194 (Version 2)
Quarter: 2018Q4

REPORT INFORMATION
  Report Type: Report from Study
  Country: US (occurrence: US)
  Receive Date: 20181026
  Receipt Date: 20181106
  Transmission Date: 20190205
  Serious: Yes (Hospitalization)
  Sender: FDA-Public Use
  Company Number: US-ACTELION-A-NJ2018-168061

PATIENT
  Age: 68 Year
  Sex: Female

DRUGS (7)
  1. SILDENAFIL. [Concomitant]
     Active Substance: SILDENAFIL
  2. REVATIO [Concomitant]
     Active Substance: SILDENAFIL CITRATE
  3. TRACLEER [Suspect]
     Active Substance: BOSENTAN
     Indication: PULMONARY ARTERIAL HYPERTENSION
     Dosage: 125 MG, BID
     Route: 048
     Dates: start: 20070509
  4. AMIODARONE [Concomitant]
     Active Substance: AMIODARONE
     Dosage: UNK, QHS
  5. COUMADIN [Concomitant]
     Active Substance: WARFARIN SODIUM
  6. REMODULIN [Concomitant]
     Active Substance: TREPROSTINIL
     Dosage: UNK
  7. TRACLEER [Concomitant]
     Active Substance: BOSENTAN
     Dosage: 125 UNK, UNK
     Route: 048

REACTIONS (6)
  - Myocardial infarction [Unknown]
  - Coronary artery disease [Unknown]
  - Coronary artery bypass [Unknown]
  - Acute coronary syndrome [Unknown]
  - Catheterisation cardiac [Unknown]
  - Atrial flutter [Not Recovered/Not Resolved]

NARRATIVE: CASE EVENT DATE: 20181011
